FAERS Safety Report 4717949-2 (Version None)
Quarter: 2005Q3

REPORT INFORMATION
  Report Type: 
  Country: None (occurrence: None)
  Receive Date: 20050718
  Receipt Date: 20050426
  Transmission Date: 20060218
  Serious: No
  Sender: FDA-Public Use
  Company Number: 243789

PATIENT
  Age: 55 Year
  Sex: Female

DRUGS (2)
  1. ACTIVELLA [Suspect]
     Indication: MENOPAUSAL SYMPTOMS
     Dosage: ORAL
     Route: 048
     Dates: start: 20011003, end: 20021001
  2. PREMPRO [Suspect]
     Indication: MENOPAUSAL SYMPTOMS
     Dosage: 0.625/2.5 MG, ORAL
     Route: 048
     Dates: start: 19980612, end: 20000714

REACTIONS (1)
  - BREAST CANCER IN SITU [None]
